FAERS Safety Report 8531829-6 (Version None)
Quarter: 2012Q3

REPORT INFORMATION
  Report Type: 
  Country: None (occurrence: None)
  Receive Date: 20120723
  Receipt Date: 20120718
  Transmission Date: 20120928
  Serious: No
  Sender: FDA-Public Use
  Company Number: US-PFIZER INC-2012174471

PATIENT
  Sex: Male
  Weight: 77.098 kg

DRUGS (5)
  1. VIAGRA [Suspect]
     Indication: SEXUALLY ACTIVE
     Dosage: 100 MG, AS NEEDED
     Route: 048
  2. LIPITOR [Suspect]
     Indication: GOUT
  3. LIPITOR [Suspect]
     Indication: HYPERTENSION
  4. LIPITOR [Suspect]
     Indication: BLOOD CHOLESTEROL INCREASED
     Dosage: 50 MG, 1X/DAY
     Route: 048
  5. LIPITOR [Suspect]
     Indication: DIABETES MELLITUS

REACTIONS (3)
  - HYPERSENSITIVITY [None]
  - RHINORRHOEA [None]
  - SNEEZING [None]
